FAERS Safety Report 9462146 (Version 1)
Quarter: 2013Q3

REPORT INFORMATION
  Report Type: Spontaneous
  Country: US (occurrence: None)
  Receive Date: 20130815
  Receipt Date: 20130815
  Transmission Date: 20140515
  Serious: Yes (Hospitalization)
  Sender: FDA-Public Use
  Company Number: None

PATIENT
  Age: 82 Year
  Sex: Female
  Weight: 71 kg

DRUGS (14)
  1. GLIMEPIRIDE [Suspect]
     Indication: DIABETES MELLITUS
     Dosage: 2MG  DAILY  PO?CHRONIC
     Route: 048
  2. METFORMIN [Concomitant]
  3. TENORMIN [Concomitant]
  4. ASA [Concomitant]
  5. NEURONTIN [Concomitant]
  6. ATIVAN/HCTZ [Concomitant]
  7. NEXIUM [Concomitant]
  8. NTG [Concomitant]
  9. VYTORIN [Concomitant]
  10. VIT D3/B12 [Concomitant]
  11. FLONASE [Concomitant]
  12. MECLIZINE [Concomitant]
  13. ADVAIR DISKUS [Concomitant]
  14. NYSTATIN [Concomitant]

REACTIONS (6)
  - Hypoglycaemia [None]
  - Hypophagia [None]
  - Gastroenteritis viral [None]
  - Blood glucose increased [None]
  - Electrocardiogram abnormal [None]
  - Blood potassium abnormal [None]
